FAERS Safety Report 21036729 (Version 5)
Quarter: 2022Q3

REPORT INFORMATION
  Report Type: Spontaneous
  Country: JP (occurrence: JP)
  Receive Date: 20220702
  Receipt Date: 20220916
  Transmission Date: 20221026
  Serious: Yes (Death, Hospitalization, Other)
  Sender: FDA-Public Use
  Company Number: JP-AMGEN-JPNSP2022112301

PATIENT
  Age: 76 Year
  Sex: Male
  Weight: 40 kg

DRUGS (5)
  1. LUMAKRAS [Suspect]
     Active Substance: SOTORASIB
     Indication: Non-small cell lung cancer
     Dosage: 960 MILLIGRAM, QD
     Route: 048
     Dates: start: 20220409, end: 20220609
  2. CELECOXIB [Concomitant]
     Active Substance: CELECOXIB
     Indication: Lung adenocarcinoma
     Dosage: 50 MILLIGRAM, BID
     Route: 048
     Dates: start: 20220411
  3. NEXIUM [Concomitant]
     Active Substance: ESOMEPRAZOLE MAGNESIUM
     Indication: Lung adenocarcinoma
     Dosage: 20 MILLIGRAM, QD
     Dates: start: 20220411
  4. CALCIUM CARBONATE\CHOLECALCIFEROL\MAGNESIUM CARBONATE [Concomitant]
     Active Substance: CALCIUM CARBONATE\CHOLECALCIFEROL\MAGNESIUM CARBONATE
     Indication: Lung adenocarcinoma
     Dosage: 1525 MILLIGRAM, QD
     Dates: start: 20220217
  5. LOXOPROFEN [Concomitant]
     Active Substance: LOXOPROFEN
     Indication: Lung adenocarcinoma
     Dosage: 60 MILLIGRAM, QD
     Dates: start: 20220326

REACTIONS (2)
  - Interstitial lung disease [Recovering/Resolving]
  - Lung adenocarcinoma [Fatal]

NARRATIVE: CASE EVENT DATE: 20220609
